FAERS Safety Report 11102502 (Version 3)
Quarter: 2015Q2

REPORT INFORMATION
  Report Type: Spontaneous
  Country: US (occurrence: US)
  Receive Date: 20150511
  Receipt Date: 20150617
  Transmission Date: 20150821
  Serious: Yes (Other)
  Sender: FDA-Public Use
  Company Number: US-JNJFOC-20150502008

PATIENT
  Age: 52 Year
  Sex: Male

DRUGS (4)
  1. NEXAVAR [Suspect]
     Active Substance: SORAFENIB
     Indication: HEPATOCELLULAR CARCINOMA
     Route: 048
     Dates: start: 20150424, end: 20150522
  2. PROPANOLOL [Concomitant]
     Active Substance: PROPRANOLOL HYDROCHLORIDE
  3. XARELTO [Suspect]
     Active Substance: RIVAROXABAN
     Indication: PRODUCT USED FOR UNKNOWN INDICATION
     Route: 048
  4. NEXAVAR [Suspect]
     Active Substance: SORAFENIB
     Indication: HEPATOCELLULAR CARCINOMA
     Route: 048
     Dates: start: 20150311, end: 20150423

REACTIONS (19)
  - Tumour thrombosis [Unknown]
  - Blood pressure increased [Not Recovered/Not Resolved]
  - Epistaxis [Unknown]
  - Diarrhoea [Unknown]
  - Cholelithiasis [Recovering/Resolving]
  - Blood pressure increased [Unknown]
  - Fatigue [Not Recovered/Not Resolved]
  - Decreased appetite [Unknown]
  - International normalised ratio decreased [Unknown]
  - Gingival bleeding [Unknown]
  - Neoplasm progression [Unknown]
  - Pulmonary thrombosis [Unknown]
  - Fatigue [Not Recovered/Not Resolved]
  - Hepatocellular carcinoma [Unknown]
  - Cholecystitis acute [Unknown]
  - Poor quality sleep [Unknown]
  - Melaena [Unknown]
  - Weight decreased [Not Recovered/Not Resolved]
  - Fatigue [Unknown]

NARRATIVE: CASE EVENT DATE: 201503
